FAERS Safety Report 10382929 (Version 8)
Quarter: 2021Q4

REPORT INFORMATION
  Report Type: Spontaneous
  Country: US (occurrence: US)
  Receive Date: 20140813
  Receipt Date: 20211218
  Transmission Date: 20220303
  Serious: No
  Sender: FDA-Public Use
  Company Number: US-SA-2014SA040174

PATIENT
  Age: 31 Year
  Sex: Male
  Weight: 162 kg

DRUGS (14)
  1. FABRAZYME [Suspect]
     Active Substance: AGALSIDASE BETA
     Indication: Fabry^s disease
     Dosage: 70 MG, QOW
     Route: 041
     Dates: start: 20090211
  2. FABRAZYME [Suspect]
     Active Substance: AGALSIDASE BETA
     Indication: Illness
  3. IBUPROFEN [Concomitant]
     Active Substance: IBUPROFEN
     Indication: Premedication
     Dosage: UNK
     Route: 048
     Dates: start: 20140325, end: 20140325
  4. PREDNISONE [Concomitant]
     Active Substance: PREDNISONE
     Indication: Premedication
     Dosage: 30 MG,UNK
     Route: 048
     Dates: start: 20140325, end: 20140325
  5. HYDROXYZINE [Concomitant]
     Active Substance: HYDROXYZINE HYDROCHLORIDE
     Indication: Premedication
     Dosage: 50 MG,1X
     Route: 048
     Dates: start: 20140325, end: 20140325
  6. SODIUM CHLORIDE [Concomitant]
     Active Substance: SODIUM CHLORIDE
  7. STERILE WATER [Concomitant]
     Active Substance: WATER
  8. EPINEPHRINE [Concomitant]
     Active Substance: EPINEPHRINE
  9. SOLU-MEDROL [Concomitant]
     Active Substance: METHYLPREDNISOLONE SODIUM SUCCINATE
  10. SODIUM CHLORIDE [Concomitant]
     Active Substance: SODIUM CHLORIDE
  11. ENBREL [Concomitant]
     Active Substance: ETANERCEPT
  12. SYMBICORT [Concomitant]
     Active Substance: BUDESONIDE\FORMOTEROL FUMARATE DIHYDRATE
  13. ASPIRIN [Concomitant]
     Active Substance: ASPIRIN
  14. TYLENOL [Concomitant]
     Active Substance: ACETAMINOPHEN

REACTIONS (17)
  - Sinus congestion [Unknown]
  - Injection site pain [Unknown]
  - COVID-19 [Recovered/Resolved]
  - SARS-CoV-2 test positive [Recovered/Resolved]
  - Nasopharyngitis [Unknown]
  - Nasal congestion [Unknown]
  - Cough [Unknown]
  - Oropharyngeal pain [Unknown]
  - Gastrointestinal infection [Unknown]
  - Body temperature increased [Unknown]
  - Incorrect dose administered [Unknown]
  - Product dose omission issue [Unknown]
  - Product use in unapproved indication [Unknown]
  - Nausea [Unknown]
  - Vomiting [Unknown]
  - Pain [Unknown]
  - Pyrexia [Unknown]

NARRATIVE: CASE EVENT DATE: 20140325
